FAERS Safety Report 22179400 (Version 1)
Quarter: 2023Q2

REPORT INFORMATION
  Report Type: Spontaneous
  Country: GB (occurrence: GB)
  Receive Date: 20230406
  Receipt Date: 20230406
  Transmission Date: 20230721
  Serious: No
  Sender: FDA-Public Use
  Company Number: None

PATIENT
  Age: 15 Year
  Sex: Female
  Weight: 29 kg

DRUGS (9)
  1. IBUPROFEN [Suspect]
     Active Substance: IBUPROFEN
     Indication: Ill-defined disorder
     Dosage: UNK
     Route: 065
     Dates: start: 20221219
  2. AMOXICILLIN [Concomitant]
     Active Substance: AMOXICILLIN
     Indication: Ill-defined disorder
     Dosage: UNK, TID (TAKE ONE 3 TIMES/DAY)
     Route: 065
     Dates: start: 20221206, end: 20221211
  3. BENZYDAMINE HYDROCHLORIDE [Concomitant]
     Active Substance: BENZYDAMINE HYDROCHLORIDE
     Indication: Ill-defined disorder
     Dosage: UNK, USE EVERY 3 HRS
     Route: 065
     Dates: start: 20221201, end: 20221206
  4. BECLOMETHASONE DIPROPIONATE [Concomitant]
     Active Substance: BECLOMETHASONE DIPROPIONATE
     Indication: Ill-defined disorder
     Dosage: UNK, BID, 2 DOSES TWICE DAILY
     Dates: start: 20220525
  5. DICLOFENAC SODIUM [Concomitant]
     Active Substance: DICLOFENAC SODIUM
     Indication: Ill-defined disorder
     Dosage: UNK, USE AS DIRECTED
     Route: 065
     Dates: start: 20221219
  6. BUTYLSCOPOLAMINE BROMIDE [Concomitant]
     Active Substance: BUTYLSCOPOLAMINE BROMIDE
     Indication: Ill-defined disorder
     Dosage: UNK, TID (TAKE ONE THREE TIMES A DAY)
     Route: 065
     Dates: start: 20221129, end: 20221209
  7. MEDROXYPROGESTERONE ACETATE [Concomitant]
     Active Substance: MEDROXYPROGESTERONE ACETATE
     Indication: Ill-defined disorder
     Dosage: UNK, USE AS DIRECTED
     Route: 065
     Dates: start: 20221003, end: 20221004
  8. NITROFURANTOIN [Concomitant]
     Active Substance: NITROFURANTOIN
     Indication: Ill-defined disorder
     Dosage: UNK, BID (TAKE ONE TWICE DAILY)
     Route: 065
     Dates: start: 20221201, end: 20221206
  9. Phenoxymenthylpenicillin [Concomitant]
     Indication: Ill-defined disorder
     Dosage: 10 MLS, QDS
     Route: 065
     Dates: start: 20220930, end: 20221005

REACTIONS (2)
  - Lip swelling [Recovered/Resolved]
  - Rash [Recovered/Resolved]

NARRATIVE: CASE EVENT DATE: 20221220
